FAERS Safety Report 5430978-9 (Version None)
Quarter: 2007Q3

REPORT INFORMATION
  Report Type: 
  Country: None (occurrence: None)
  Receive Date: 20070830
  Receipt Date: 20070827
  Transmission Date: 20080115
  Serious: Yes (Hospitalization)
  Sender: FDA-Public Use
  Company Number: A0676681A

PATIENT
  Age: 47 Year
  Sex: Female

DRUGS (3)
  1. AMERGE [Suspect]
     Indication: DRUG USE FOR UNKNOWN INDICATION
     Dosage: 2.5MG AS REQUIRED
     Route: 048
     Dates: start: 20070101, end: 20070801
  2. NADOLOL [Concomitant]
     Dosage: 80MG PER DAY
     Route: 065
  3. ZOMIG [Concomitant]
     Route: 065

REACTIONS (3)
  - INTESTINAL ISCHAEMIA [None]
  - PAIN [None]
  - RECTAL HAEMORRHAGE [None]
